FAERS Safety Report 9506028 (Version 2)
Quarter: 2013Q2

REPORT INFORMATION
  Report Type: Spontaneous
  Country: US (occurrence: None)
  Receive Date: 20130201
  Receipt Date: 20130510
  Transmission Date: 20140414
  Serious: No
  Sender: FDA-Public Use
  Company Number: US-010574

PATIENT
  Age: 72 Year
  Sex: Male
  Weight: 104.33 kg

DRUGS (2)
  1. PICO-SALAX [Suspect]
     Indication: COLONOSCOPY
     Dosage: ON PACKET ON 7-JAN-2013 AT 6PM AND SECOND PACKET ON 08-JAN-2013 AT 3AM ORAL)
     Route: 048
     Dates: start: 20130107
  2. DIOVAN [Concomitant]

REACTIONS (1)
  - Urinary retention [None]
